FAERS Safety Report 20937490 (Version 1)
Quarter: 2022Q2

REPORT INFORMATION
  Report Type: Spontaneous
  Country: JP (occurrence: JP)
  Receive Date: 20220609
  Receipt Date: 20220609
  Transmission Date: 20220721
  Serious: Yes (Other)
  Sender: FDA-Public Use
  Company Number: JP-BAYER-2021A257013

PATIENT
  Age: 74 Year
  Sex: Male

DRUGS (1)
  1. EYLEA [Suspect]
     Active Substance: AFLIBERCEPT
     Indication: Product used for unknown indication
     Dosage: UNK, SOLUTION FOR INJECTION
     Route: 031
     Dates: start: 20211117, end: 20211117

REACTIONS (3)
  - Visual impairment [Unknown]
  - Retinal artery occlusion [Unknown]
  - Vision blurred [Unknown]

NARRATIVE: CASE EVENT DATE: 20211122
